FAERS Safety Report 24709839 (Version 2)
Quarter: 2025Q2

REPORT INFORMATION
  Report Type: Spontaneous
  Country: DE (occurrence: DE)
  Receive Date: 20241209
  Receipt Date: 20250430
  Transmission Date: 20250716
  Serious: Yes (Other)
  Sender: TEVA
  Company Number: DE-TEVA-VS-3272378

PATIENT
  Age: 29 Year
  Sex: Male

DRUGS (10)
  1. QUETIAPINE [Suspect]
     Active Substance: QUETIAPINE
     Indication: Schizotypal personality disorder
     Dosage: ABZ RETARDTABLETTEN
     Route: 048
  2. QUETIAPINE [Suspect]
     Active Substance: QUETIAPINE
     Indication: Schizotypal personality disorder
     Dosage: ABZ RETARDTABLETTEN
     Route: 048
  3. QUETIAPINE [Suspect]
     Active Substance: QUETIAPINE
     Indication: Schizotypal personality disorder
     Dosage: ABZ RETARDTABLETTEN
     Route: 048
  4. QUETIAPINE [Suspect]
     Active Substance: QUETIAPINE
     Indication: Schizotypal personality disorder
     Route: 048
     Dates: start: 202109
  5. QUETIAPINE [Suspect]
     Active Substance: QUETIAPINE
     Indication: Schizotypal personality disorder
     Dosage: EVENING DOSE OF 600MGRET.+ 50MG
     Route: 065
     Dates: start: 202503
  6. QUETIAPINE [Suspect]
     Active Substance: QUETIAPINE
     Indication: Schizotypal personality disorder
     Route: 048
     Dates: start: 202109
  7. QUETIAPINE [Suspect]
     Active Substance: QUETIAPINE
     Indication: Schizotypal personality disorder
     Route: 048
  8. QUETIAPINE [Suspect]
     Active Substance: QUETIAPINE
     Indication: Schizotypal personality disorder
     Route: 048
  9. METHYLPHENIDATE [Concomitant]
     Active Substance: METHYLPHENIDATE
     Indication: Product used for unknown indication
     Dosage: 10 MG-10 MG-5MG-5MG (TOTAL 25-30 MG)
     Route: 065
     Dates: start: 202412
  10. RITALIN [Suspect]
     Active Substance: METHYLPHENIDATE HYDROCHLORIDE
     Indication: Product used for unknown indication
     Route: 065
     Dates: start: 202412

REACTIONS (10)
  - Drug dependence [Unknown]
  - Poor quality sleep [Unknown]
  - Therapeutic product effect decreased [Unknown]
  - Tremor [Recovered/Resolved]
  - Disturbance in attention [Unknown]
  - Restlessness [Recovered/Resolved]
  - Impaired work ability [Unknown]
  - Impaired quality of life [Unknown]
  - Daydreaming [Unknown]
  - Fatigue [Unknown]

NARRATIVE: CASE EVENT DATE: 20211001
